FAERS Safety Report 4494627-9 (Version None)
Quarter: 2004Q4

REPORT INFORMATION
  Report Type: 
  Country: None (occurrence: None)
  Receive Date: 20041103
  Receipt Date: 20041018
  Transmission Date: 20050328
  Serious: Yes (Hospitalization)
  Sender: FDA-Public Use
  Company Number: 2004AC00591

PATIENT
  Age: 36 Year
  Sex: Male

DRUGS (7)
  1. QUETIAPINE [Suspect]
     Indication: SCHIZOPHRENIA
     Dosage: 750 MG DAILY PO
     Route: 048
  2. QUETIAPINE [Suspect]
     Indication: SCHIZOPHRENIA
     Dosage: 900 MG DAILY PO
     Route: 048
  3. DOXEPIN HCL [Suspect]
     Dosage: 100 MG DAILY
  4. LORAZEPAM [Suspect]
     Dosage: 4.5 MG DAILY
  5. LORAZEPAM [Suspect]
     Dosage: 2 MG DAILY
  6. LORAZEPAM [Suspect]
     Dosage: 0.5 MG DAILY
  7. PANTOPRAZOLE [Suspect]
     Indication: REFLUX OESOPHAGITIS
     Dosage: 40 MG DAILY

REACTIONS (6)
  - AGITATION [None]
  - AKATHISIA [None]
  - DRUG INTERACTION [None]
  - DRUG LEVEL INCREASED [None]
  - GASTROINTESTINAL DISORDER [None]
  - RESTLESSNESS [None]
